FAERS Safety Report 8969092 (Version 2)
Quarter: 2013Q1

REPORT INFORMATION
  Report Type: Report from Study
  Country: US (occurrence: US)
  Receive Date: 20121217
  Receipt Date: 20130131
  Transmission Date: 20140127
  Serious: Yes (Hospitalization, Other)
  Sender: FDA-Public Use
  Company Number: US-ROCHE-1167088

PATIENT
  Age: 61 Year
  Sex: Female
  Weight: 65.38 kg

DRUGS (4)
  1. VISMODEGIB [Suspect]
     Indication: BASAL CELL CARCINOMA
     Route: 048
     Dates: start: 20110901, end: 20121206
  2. WELLBUTRIN [Concomitant]
     Indication: DEPRESSION
     Route: 048
     Dates: start: 201207
  3. DIAZEPAM [Concomitant]
     Indication: ANXIETY
     Route: 048
     Dates: start: 200301
  4. PRAVADIOL [Concomitant]
     Indication: BLOOD CHOLESTEROL
     Route: 048
     Dates: start: 201211

REACTIONS (1)
  - Anaemia [Recovering/Resolving]
